FAERS Safety Report 7030705-8 (Version None)
Quarter: 2010Q4

REPORT INFORMATION
  Report Type: 
  Country: None (occurrence: None)
  Receive Date: 20101006
  Receipt Date: 20101005
  Transmission Date: 20110411
  Serious: Yes (Other)
  Sender: FDA-Public Use
  Company Number: GB-JNJFOC-20080302902

PATIENT
  Sex: Male

DRUGS (2)
  1. IBUPROFEN [Suspect]
     Indication: HAEMORRHOIDS
  2. EPANUTIN [Interacting]
     Indication: EPILEPSY
     Route: 048

REACTIONS (3)
  - CONTUSION [None]
  - DRUG INTERACTION [None]
  - PERSONALITY CHANGE [None]
